FAERS Safety Report 6795680-X (Version None)
Quarter: 2010Q2

REPORT INFORMATION
  Report Type: 
  Country: None (occurrence: None)
  Receive Date: 20100625
  Receipt Date: 20100614
  Transmission Date: 20101027
  Serious: Yes (Hospitalization)
  Sender: FDA-Public Use
  Company Number: CA-ELI_LILLY_AND_COMPANY-CA201004006055

PATIENT
  Age: 56 Year
  Sex: Female

DRUGS (12)
  1. CYMBALTA [Suspect]
     Indication: DEPRESSION
     Dosage: 30 MG, DAILY (1/D)
     Dates: start: 20091110, end: 20091202
  2. CYMBALTA [Suspect]
     Dosage: 60 MG, DAILY (1/D)
     Dates: start: 20091202, end: 20100511
  3. CYMBALTA [Suspect]
     Dosage: 30 MG, UNK
     Dates: start: 20100511, end: 20100618
  4. CIPRALEX [Concomitant]
     Dosage: 10 MG, UNK
     Dates: start: 20090304, end: 20090323
  5. CIPRALEX [Concomitant]
     Dosage: 20 MG, UNK
     Dates: start: 20100323
  6. TRAZODONE HYDROCHLORIDE [Concomitant]
  7. SYNTHROID [Concomitant]
  8. PREVACID [Concomitant]
  9. CAMPRAL [Concomitant]
  10. VITAMIN TAB [Concomitant]
  11. CLONAZEPAM [Concomitant]
  12. IMOVANE [Concomitant]

REACTIONS (3)
  - ALCOHOL ABUSE [None]
  - DRUG INEFFECTIVE [None]
  - SUICIDAL IDEATION [None]
